FAERS Safety Report 5290326-4 (Version None)
Quarter: 2007Q2

REPORT INFORMATION
  Report Type: 
  Country: None (occurrence: None)
  Receive Date: 20070409
  Receipt Date: 20070327
  Transmission Date: 20071010
  Serious: Yes (Other)
  Sender: FDA-Public Use
  Company Number: PHEH2007US03676

PATIENT
  Sex: Female

DRUGS (2)
  1. TRILEPTAL [Suspect]
     Dosage: 900 MG, QD
  2. TRILEPTAL [Suspect]
     Dosage: 1200 MG, QD

REACTIONS (5)
  - AFFECT LABILITY [None]
  - DEPRESSION [None]
  - DYSGEUSIA [None]
  - FEAR [None]
  - POISONING [None]
